FAERS Safety Report 10419853 (Version 1)
Quarter: 2014Q3

REPORT INFORMATION
  Report Type: Spontaneous
  Country: US (occurrence: None)
  Receive Date: 20140828
  Receipt Date: 20140828
  Transmission Date: 20150326
  Serious: Yes (Hospitalization)
  Sender: FDA-Public Use
  Company Number: FK201403405

PATIENT
  Age: 36 Year
  Sex: Male

DRUGS (3)
  1. IDARUBICIN (IDARUBICIN) [Concomitant]
  2. PREDNISOLONE ACETATE (PREDNISOLONE ACETATE) [Concomitant]
  3. CYTARABINE (MANUFACTURER UNKNOWN) (CYTARABINE) (CYTARABINE) [Suspect]
     Active Substance: CYTARABINE
     Indication: ACUTE MYELOID LEUKAEMIA
     Dosage: CONTINUOUS

REACTIONS (5)
  - Conjunctivitis bacterial [None]
  - Iridocyclitis [None]
  - Intraocular pressure increased [None]
  - Toxicity to various agents [None]
  - Gastroenteritis [None]
